FAERS Safety Report 5198759-1 (Version None)
Quarter: 2007Q1

REPORT INFORMATION
  Report Type: 
  Country: None (occurrence: None)
  Receive Date: 20070104
  Receipt Date: 20070102
  Transmission Date: 20070707
  Serious: Yes (Hospitalization)
  Sender: FDA-Public Use
  Company Number: BW-GLAXOSMITHKLINE-B0448148A

PATIENT
  Age: 21 Year
  Sex: Female
  Weight: 64 kg

DRUGS (1)
  1. TRIZIVIR [Suspect]
     Indication: HIV INFECTION
     Dosage: 1TAB TWICE PER DAY
     Route: 048
     Dates: start: 20061024

REACTIONS (5)
  - HAEMOGLOBIN DECREASED [None]
  - HYPERTENSION [None]
  - OEDEMA PERIPHERAL [None]
  - PRE-ECLAMPSIA [None]
  - PROTEINURIA [None]
